FAERS Safety Report 9858220 (Version 1)
Quarter: 2014Q1

REPORT INFORMATION
  Report Type: Spontaneous
  Country: FR (occurrence: None)
  Receive Date: 20140129
  Receipt Date: 20140129
  Transmission Date: 20141002
  Serious: No
  Sender: FDA-Public Use
  Company Number: 2135459

PATIENT
  Age: 81 Year
  Sex: Female

DRUGS (14)
  1. CARBOPLATIN [Suspect]
     Indication: SMALL CELL LUNG CANCER
     Route: 041
     Dates: start: 20130307, end: 20130307
  2. ETOPOSIDE [Suspect]
     Indication: SMALL CELL LUNG CANCER
     Route: 041
     Dates: start: 20130307, end: 20130307
  3. ROXITHROMYCIN [Suspect]
     Indication: LUNG DISORDER
     Route: 048
     Dates: start: 20130319, end: 20130325
  4. LEXOMIL [Concomitant]
  5. SERETIDE DISCUS [Concomitant]
  6. SPIRIVA [Concomitant]
  7. ARIUS [Concomitant]
  8. CALCIDOSE VITAMIN D [Concomitant]
  9. STILNOX [Concomitant]
  10. DEXERYL [Concomitant]
  11. APROVEL [Concomitant]
  12. INEXIUM [Concomitant]
  13. MUCOMYST [Concomitant]
  14. FLIXONASE [Concomitant]

REACTIONS (4)
  - Hypersensitivity vasculitis [None]
  - Erythema multiforme [None]
  - Purpura [None]
  - Skin toxicity [None]
